FAERS Safety Report 20996531 (Version 1)
Quarter: 2022Q2

REPORT INFORMATION
  Report Type: Spontaneous
  Country: IT (occurrence: IT)
  Receive Date: 20220623
  Receipt Date: 20220623
  Transmission Date: 20220721
  Serious: Yes (Other)
  Sender: FDA-Public Use
  Company Number: IT-CELLTRION INC.-2022IT008388

PATIENT

DRUGS (12)
  1. RITUXIMAB [Suspect]
     Active Substance: RITUXIMAB
     Indication: Juvenile idiopathic arthritis
  2. ADALIMUMAB [Suspect]
     Active Substance: ADALIMUMAB
     Indication: Juvenile idiopathic arthritis
     Dosage: UNIT=NOT AVAILABLE; UNK
     Route: 065
  3. ABATACEPT [Concomitant]
     Active Substance: ABATACEPT
  4. AZATHIOPRINE [Concomitant]
     Active Substance: AZATHIOPRINE
  5. CYCLOSPORINE [Concomitant]
     Active Substance: CYCLOSPORINE
  6. CERTOLIZUMAB [Concomitant]
     Active Substance: CERTOLIZUMAB
  7. METHOTREXATE [Concomitant]
     Active Substance: METHOTREXATE
  8. LEFLUNOMIDE [Concomitant]
     Active Substance: LEFLUNOMIDE
  9. SARILUMAB [Concomitant]
     Active Substance: SARILUMAB
  10. TOCILIZUMAB [Concomitant]
     Active Substance: TOCILIZUMAB
  11. ETANERCEPT [Concomitant]
     Active Substance: ETANERCEPT
     Indication: Product used for unknown indication
     Dosage: UNK
     Route: 065
  12. PREDNISONE [Concomitant]
     Active Substance: PREDNISONE

REACTIONS (11)
  - Premature delivery [Unknown]
  - Pre-eclampsia [Unknown]
  - Abortion spontaneous [Unknown]
  - Premature separation of placenta [Unknown]
  - Juvenile idiopathic arthritis [Unknown]
  - Caesarean section [Unknown]
  - Assisted delivery [Unknown]
  - Abortion induced [Unknown]
  - Maternal exposure during pregnancy [Unknown]
  - Maternal exposure before pregnancy [Unknown]
  - Off label use [Unknown]
